FAERS Safety Report 7371699-5 (Version None)
Quarter: 2011Q1

REPORT INFORMATION
  Report Type: 
  Country: None (occurrence: None)
  Receive Date: 20110316
  Receipt Date: 20110303
  Transmission Date: 20110831
  Serious: Yes (Life-Threatening, Hospitalization)
  Sender: FDA-Public Use
  Company Number: GER/UKI/11/0017620

PATIENT
  Age: 88 Year
  Sex: Female

DRUGS (8)
  1. FERROUS FUMARATE [Concomitant]
  2. NAPROXEN [Suspect]
     Indication: PRODUCT USED FOR UNKNOWN INDICATION
     Dosage: 250 MG, 2 IN 1 D, ORAL
     Route: 048
     Dates: start: 20110129, end: 20110223
  3. MOVICOL (NULYTELY /01053601/) [Concomitant]
  4. LEVOTHYROXINE SODIUM [Concomitant]
  5. OMEPRAZOLE [Concomitant]
  6. FOLIC ACID [Concomitant]
  7. AMITRIPTYLINE HYDROCHLORIDE [Concomitant]
  8. FUROSEMIDE [Concomitant]

REACTIONS (2)
  - PULMONARY OEDEMA [None]
  - ACUTE RESPIRATORY DISTRESS SYNDROME [None]
